FAERS Safety Report 25667989 (Version 2)
Quarter: 2025Q3

REPORT INFORMATION
  Report Type: Report from Study
  Country: GB (occurrence: GB)
  Receive Date: 20250812
  Receipt Date: 20250918
  Transmission Date: 20251020
  Serious: Yes (Hospitalization)
  Sender: CELLTRION
  Company Number: GB-CELLTRION INC.-2024GB026474

PATIENT

DRUGS (2)
  1. INFLIXIMAB-DYYB [Suspect]
     Active Substance: INFLIXIMAB-DYYB
     Indication: Colitis ulcerative
     Dosage: REMSIMA (INFLIXIMAB) 120MG PRE FILLED PEN PK2 EVERY WEEK
     Route: 058
     Dates: start: 202410
  2. INFLIXIMAB-DYYB [Suspect]
     Active Substance: INFLIXIMAB-DYYB
     Route: 058
     Dates: start: 202309

REACTIONS (3)
  - Asthma [Unknown]
  - Drug ineffective [Unknown]
  - Off label use [Unknown]
